FAERS Safety Report 14450744 (Version 1)
Quarter: 2018Q1

REPORT INFORMATION
  Report Type: Spontaneous
  Country: US (occurrence: US)
  Receive Date: 20180126
  Receipt Date: 20180126
  Transmission Date: 20180509
  Serious: Yes (Other)
  Sender: FDA-Public Use
  Company Number: None

PATIENT
  Age: 5 Year
  Sex: Male
  Weight: 20.61 kg

DRUGS (2)
  1. GAMUNEX-C [Suspect]
     Active Substance: HUMAN IMMUNOGLOBULIN G
     Indication: PAEDIATRIC AUTOIMMUNE NEUROPSYCHIATRIC DISORDERS ASSOCIATED WITH STREPTOCOCCAL INFECTION
     Dosage: ?          OTHER FREQUENCY:DAILY X 2 DAYS;?
     Route: 041
     Dates: start: 20180119, end: 20180119
  2. GAMUNEX-C [Suspect]
     Active Substance: HUMAN IMMUNOGLOBULIN G
     Indication: PAEDIATRIC AUTOIMMUNE NEUROPSYCHIATRIC DISORDERS ASSOCIATED WITH STREPTOCOCCAL INFECTION
     Dosage: ?          OTHER FREQUENCY:DAILY X 2 DAYS;?
     Route: 041
     Dates: start: 20180119, end: 20180119

REACTIONS (13)
  - Rash [None]
  - Heart rate increased [None]
  - Abdominal pain [None]
  - Flatulence [None]
  - Cold sweat [None]
  - Flushing [None]
  - Hypertension [None]
  - Feeling hot [None]
  - Blood pressure increased [None]
  - Respiratory rate increased [None]
  - Abdominal distension [None]
  - Infusion related reaction [None]
  - Gastrointestinal sounds abnormal [None]

NARRATIVE: CASE EVENT DATE: 20180119
